FAERS Safety Report 4702374-0 (Version None)
Quarter: 2005Q2

REPORT INFORMATION
  Report Type: 
  Country: None (occurrence: None)
  Receive Date: 20050624
  Receipt Date: 20050225
  Transmission Date: 20051028
  Serious: No
  Sender: FDA-Public Use
  Company Number: 2005BI005067

PATIENT
  Sex: Female

DRUGS (2)
  1. NATALIZUMAB [Suspect]
     Indication: MULTIPLE SCLEROSIS
     Dosage: 300 MG; QM; IV
     Route: 042
     Dates: start: 20050216
  2. AVONEX [Suspect]
     Indication: MULTIPLE SCLEROSIS
     Dosage: IM
     Route: 030
     Dates: start: 20040108

REACTIONS (8)
  - AMNESIA [None]
  - DEPRESSION [None]
  - DIFFICULTY IN WALKING [None]
  - DYSPEPSIA [None]
  - FATIGUE [None]
  - HUNGER [None]
  - HYPOAESTHESIA [None]
  - PAIN IN EXTREMITY [None]
